FAERS Safety Report 5241018-9 (Version None)
Quarter: 2007Q1

REPORT INFORMATION
  Report Type: 
  Country: None (occurrence: None)
  Receive Date: 20070219
  Receipt Date: 20070213
  Transmission Date: 20070707
  Serious: Yes (Death, Other)
  Sender: FDA-Public Use
  Company Number: IE-ABBOTT-05P-229-0287197-00

PATIENT
  Sex: Male

DRUGS (2)
  1. KLACID [Suspect]
     Indication: PNEUMONIA
     Route: 048
     Dates: start: 20050104, end: 20050111
  2. KLACID [Suspect]
     Indication: LOWER RESPIRATORY TRACT INFECTION

REACTIONS (6)
  - ABNORMAL BEHAVIOUR [None]
  - COMPLETED SUICIDE [None]
  - DELUSIONAL DISORDER, UNSPECIFIED TYPE [None]
  - EUPHORIC MOOD [None]
  - HALLUCINATION [None]
  - SLEEP DISORDER [None]
